FAERS Safety Report 5471958-7 (Version None)
Quarter: 2007Q3

REPORT INFORMATION
  Report Type: 
  Country: None (occurrence: None)
  Receive Date: 20070928
  Receipt Date: 20070918
  Transmission Date: 20080115
  Serious: Yes (Life-Threatening)
  Sender: FDA-Public Use
  Company Number: GB-PFIZER INC-2007073160

PATIENT
  Age: 32 Year
  Sex: Male

DRUGS (7)
  1. AMLODIPINE [Suspect]
     Indication: HYPERTENSION
  2. ENALAPRIL MALEATE [Suspect]
     Indication: HYPERTENSION
  3. METHYLPREDNISOLONE [Suspect]
  4. ACYCLOVIR [Concomitant]
  5. INSULIN [Concomitant]
  6. PHENYTOIN [Concomitant]
  7. BENZODIAZEPINE DERIVATIVES [Concomitant]

REACTIONS (1)
  - DRUG INEFFECTIVE [None]
